FAERS Safety Report 13284507 (Version 1)
Quarter: 2017Q1

REPORT INFORMATION
  Report Type: Spontaneous
  Country: IL (occurrence: IL)
  Receive Date: 20170301
  Receipt Date: 20170301
  Transmission Date: 20170428
  Serious: Yes (Hospitalization)
  Sender: FDA-Public Use
  Company Number: IL-ABBVIE-17K-082-1886350-00

PATIENT
  Sex: Female

DRUGS (1)
  1. HUMIRA [Suspect]
     Active Substance: ADALIMUMAB
     Indication: CHRONIC DISEASE
     Route: 058
     Dates: start: 20170108

REACTIONS (4)
  - Pruritus generalised [Unknown]
  - Generalised erythema [Not Recovered/Not Resolved]
  - Injection site erythema [Unknown]
  - Insomnia [Unknown]

NARRATIVE: CASE EVENT DATE: 2017
